FAERS Safety Report 9784508 (Version 2)
Quarter: 2013Q4

REPORT INFORMATION
  Report Type: Report from Study
  Country: FR (occurrence: FR)
  Receive Date: 20131226
  Receipt Date: 20131226
  Transmission Date: 20140711
  Serious: Yes (Hospitalization, Other)
  Sender: FDA-Public Use
  Company Number: FR-CELGENEUS-056-C4047-13083991

PATIENT
  Age: 60 Year
  Sex: Female
  Weight: 51 kg

DRUGS (6)
  1. CC-4047 [Suspect]
     Indication: PLASMA CELL MYELOMA
     Dosage: 4 MILLIGRAM
     Route: 048
     Dates: start: 20120618, end: 20131007
  2. ENDOXAN [Suspect]
     Indication: PLASMA CELL MYELOMA
     Route: 065
     Dates: start: 201305, end: 20131007
  3. NEODEX [Concomitant]
     Indication: PLASMA CELL MYELOMA
     Route: 065
     Dates: start: 201206, end: 20131007
  4. CLAMOXYL [Concomitant]
     Indication: PLASMA CELL MYELOMA
     Dosage: 2X
     Route: 065
     Dates: start: 201206, end: 20131007
  5. ASA [Concomitant]
     Indication: PRODUCT USED FOR UNKNOWN INDICATION
     Route: 065
  6. ZELITREX [Concomitant]
     Indication: PRODUCT USED FOR UNKNOWN INDICATION
     Route: 065

REACTIONS (7)
  - Hypokalaemia [Recovered/Resolved]
  - Hypokalaemia [Not Recovered/Not Resolved]
  - Febrile neutropenia [Recovered/Resolved]
  - Thrombocytopenia [Recovered/Resolved]
  - Diarrhoea [Recovered/Resolved]
  - Diarrhoea [Not Recovered/Not Resolved]
  - Platelet count decreased [Unknown]
